FAERS Safety Report 6986665-9 (Version None)
Quarter: 2010Q3

REPORT INFORMATION
  Report Type: 
  Country: None (occurrence: None)
  Receive Date: 20100915
  Receipt Date: 20090730
  Transmission Date: 20110219
  Serious: No
  Sender: FDA-Public Use
  Company Number: US-WYE-H10395509

PATIENT

DRUGS (1)
  1. PRISTIQ [Suspect]
     Dosage: 50 MG X 5 WEEKS THEN TITRATED TO 100 MG

REACTIONS (1)
  - DRUG INEFFECTIVE [None]
